FAERS Safety Report 7951042-0 (Version None)
Quarter: 2011Q4

REPORT INFORMATION
  Report Type: 
  Country: None (occurrence: None)
  Receive Date: 20111201
  Receipt Date: 20111129
  Transmission Date: 20120403
  Serious: No
  Sender: FDA-Public Use
  Company Number: US-BIOGENIDEC-2011BI045166

PATIENT
  Age: 45 Year
  Sex: Female

DRUGS (5)
  1. TYSABRI [Suspect]
     Indication: MULTIPLE SCLEROSIS
     Route: 042
     Dates: start: 20111128
  2. TYSABRI [Suspect]
     Route: 042
     Dates: start: 20050209, end: 20050209
  3. TYSABRI [Suspect]
     Route: 042
     Dates: start: 20110525, end: 20111027
  4. COPAXONE [Concomitant]
  5. TYSABRI [Suspect]
     Route: 042
     Dates: start: 20070806, end: 20100215

REACTIONS (4)
  - URTICARIA [None]
  - MULTIPLE SCLEROSIS RELAPSE [None]
  - HYPOAESTHESIA ORAL [None]
  - DYSARTHRIA [None]
